FAERS Safety Report 9550201 (Version 3)
Quarter: 2013Q4

REPORT INFORMATION
  Report Type: Spontaneous
  Country: FR (occurrence: FR)
  Receive Date: 20130924
  Receipt Date: 20131118
  Transmission Date: 20140711
  Serious: Yes (Hospitalization)
  Sender: FDA-Public Use
  Company Number: FR-JNJFOC-20130907075

PATIENT
  Age: 63 Year
  Sex: Female

DRUGS (11)
  1. LOPERAMIDE HYDROCHLORIDE [Suspect]
     Indication: DIARRHOEA
     Route: 065
     Dates: start: 20120922
  2. SMECTITE [Suspect]
     Indication: DIARRHOEA
     Route: 065
  3. RACECADOTRIL [Suspect]
     Indication: DIARRHOEA
     Route: 065
  4. VELCADE [Suspect]
     Indication: PLASMA CELL MYELOMA
     Route: 058
     Dates: start: 20120723
  5. DEXAMETHASONE [Suspect]
     Indication: PLASMA CELL MYELOMA
     Route: 048
     Dates: start: 20120723
  6. ELOTUZUMAB [Suspect]
     Indication: PLASMA CELL MYELOMA
     Route: 042
     Dates: start: 20120723
  7. PAMIDRONATE DISODIUM [Concomitant]
     Route: 065
     Dates: start: 20120708
  8. METOCLOPRAMIDE [Concomitant]
     Route: 065
     Dates: start: 20120708
  9. OXYCODONE [Concomitant]
     Route: 065
     Dates: start: 20120706
  10. LEVOTHYROXINE [Concomitant]
     Route: 065
     Dates: start: 20090514
  11. ALPRAZOLAM [Concomitant]
     Route: 065
     Dates: start: 20120808

REACTIONS (8)
  - Diarrhoea [Recovered/Resolved]
  - Vomiting [Not Recovered/Not Resolved]
  - Asthenia [Not Recovered/Not Resolved]
  - Hypotension [Not Recovered/Not Resolved]
  - Renal failure [Not Recovered/Not Resolved]
  - Dehydration [Not Recovered/Not Resolved]
  - Weight decreased [Not Recovered/Not Resolved]
  - Hypokalaemia [Not Recovered/Not Resolved]
